FAERS Safety Report 8098575-7 (Version None)
Quarter: 2012Q1

REPORT INFORMATION
  Report Type: 
  Country: None (occurrence: None)
  Receive Date: 20120129
  Receipt Date: 20111024
  Transmission Date: 20120608
  Serious: No
  Sender: FDA-Public Use
  Company Number: US-ABBOTT-11P-163-0854979-00

PATIENT
  Sex: Female
  Weight: 81.72 kg

DRUGS (21)
  1. HUMIRA [Suspect]
     Dosage: PATIENT AWAITING NEXT DOSE OF 40MG
     Dates: start: 20110801, end: 20110801
  2. MIRENA [Concomitant]
     Indication: CONTRACEPTION
     Dosage: IUD
  3. WELLBUTRIN [Concomitant]
     Indication: PRODUCT USED FOR UNKNOWN INDICATION
  4. IMODIUM [Concomitant]
     Indication: DIARRHOEA
  5. GENERIC CERTIZINE HYDROCHLORIDE [Concomitant]
     Indication: HYPERSENSITIVITY
     Route: 048
  6. STEROID [Concomitant]
     Indication: PRODUCT USED FOR UNKNOWN INDICATION
  7. HUMIRA [Suspect]
  8. PHENERGAN [Concomitant]
     Indication: NAUSEA
  9. LOMOTIL [Concomitant]
     Indication: DIARRHOEA
     Dosage: 1-2 TABS, EVERY 6 HOURS, AS REQUIRED
  10. MOTRIN [Concomitant]
     Indication: PRODUCT USED FOR UNKNOWN INDICATION
  11. VENTOLIN [Concomitant]
     Indication: PRODUCT USED FOR UNKNOWN INDICATION
  12. HUMIRA [Suspect]
     Indication: CROHN'S DISEASE
     Route: 058
     Dates: start: 20110801, end: 20110801
  13. TRAMADOL HCL [Concomitant]
     Indication: ENDOMETRIOSIS
     Dosage: UP TO 4 TIMES A DAY, AS REQUIRED
     Route: 048
  14. PEPCID [Concomitant]
     Indication: CHOLECYSTECTOMY
     Route: 048
  15. ACETAMINOPHEN [Concomitant]
     Indication: PAIN
  16. PREDNISONE TAB [Concomitant]
     Indication: CROHN'S DISEASE
     Dosage: TAPERED OFF BY 10 MILLIGRAMS
     Route: 048
     Dates: start: 20110101
  17. STOOL SOFTENER [Concomitant]
     Indication: PRODUCT USED FOR UNKNOWN INDICATION
  18. KLONOPIN [Concomitant]
     Indication: PRODUCT USED FOR UNKNOWN INDICATION
  19. VICODIN [Concomitant]
     Indication: PAIN
     Dosage: 10-325, 1-3 TIMES A DAY, AS REQUIRED
  20. SAVELLA [Concomitant]
  21. PREDNISONE TAB [Concomitant]
     Route: 048
     Dates: start: 20110101, end: 20110101

REACTIONS (12)
  - INAPPROPRIATE SCHEDULE OF DRUG ADMINISTRATION [None]
  - SKIN HYPOPIGMENTATION [None]
  - RHINORRHOEA [None]
  - DYSPHONIA [None]
  - INCREASED TENDENCY TO BRUISE [None]
  - PAIN OF SKIN [None]
  - ALCOHOL INTOLERANCE [None]
  - INFECTION [None]
  - SKIN DISORDER [None]
  - NASOPHARYNGITIS [None]
  - HAEMORRHAGE [None]
  - SKIN FISSURES [None]
